FAERS Safety Report 20475132 (Version 2)
Quarter: 2022Q1

REPORT INFORMATION
  Report Type: Spontaneous
  Country: US (occurrence: US)
  Receive Date: 20220215
  Receipt Date: 20220304
  Transmission Date: 20220423
  Serious: Yes (Death, Hospitalization, Other)
  Sender: FDA-Public Use
  Company Number: US-INCYTE CORPORATION-2022IN001131

PATIENT

DRUGS (2)
  1. JAKAFI [Suspect]
     Active Substance: RUXOLITINIB
     Indication: Polycythaemia vera
     Dosage: 40 MILLIGRAM TWICE WEEKLY ON SUNDAY AND THURSDAY
     Route: 048
     Dates: start: 202110
  2. JAKAFI [Suspect]
     Active Substance: RUXOLITINIB
     Dosage: 20 MILLIGRAM ON ALL OTHER DAYS
     Route: 048
     Dates: start: 202110

REACTIONS (3)
  - Death [Fatal]
  - Squamous cell carcinoma of the hypopharynx [Unknown]
  - Disease complication [Unknown]
